FAERS Safety Report 13608187 (Version 1)
Quarter: 2017Q2

REPORT INFORMATION
  Report Type: Spontaneous
  Country: IE (occurrence: IE)
  Receive Date: 20170602
  Receipt Date: 20170602
  Transmission Date: 20170830
  Serious: Yes (Life-Threatening, Hospitalization, Other)
  Sender: FDA-Public Use
  Company Number: IE-MYLANLABS-2017M1031877

PATIENT

DRUGS (2)
  1. ROCEPHIN [Suspect]
     Active Substance: CEFTRIAXONE SODIUM
     Indication: INFECTION
     Dosage: 2G STAT DOSE
     Route: 042
     Dates: start: 20170510, end: 20170510
  2. KLACID [Suspect]
     Active Substance: CLARITHROMYCIN
     Indication: INFECTION
     Dosage: 250 MG, BID
     Route: 042
     Dates: start: 20170511, end: 20170512

REACTIONS (4)
  - Wheezing [Recovered/Resolved]
  - Angioedema [Recovered/Resolved]
  - Rash [Recovered/Resolved]
  - Dyspnoea [Recovered/Resolved]
